FAERS Safety Report 6814548-3 (Version None)
Quarter: 2010Q3

REPORT INFORMATION
  Report Type: 
  Country: None (occurrence: None)
  Receive Date: 20100702
  Receipt Date: 20100630
  Transmission Date: 20110219
  Serious: Yes (Hospitalization, Other)
  Sender: FDA-Public Use
  Company Number: IT-ROXANE LABORATORIES, INC.-2010-RO-00776RO

PATIENT
  Age: 26 Year
  Sex: Female

DRUGS (16)
  1. LAMOTRIGINE [Suspect]
     Indication: BIPOLAR DISORDER
  2. ESCITALOPRAM [Suspect]
     Indication: BIPOLAR DISORDER
  3. CEFIXIME [Suspect]
     Indication: PYREXIA
     Dosage: 800 MG
  4. CEFIXIME [Suspect]
     Indication: ASTHENIA
  5. CEFIXIME [Suspect]
     Indication: NAUSEA
  6. CEFIXIME [Suspect]
     Indication: MYALGIA
  7. CEFIXIME [Suspect]
     Indication: ARTHRALGIA
  8. BETAMETHASONE [Suspect]
     Indication: RASH GENERALISED
     Dosage: 1 MG
  9. BETAMETHASONE [Suspect]
     Indication: RASH PRURITIC
     Route: 042
  10. BETAMETHASONE [Suspect]
     Indication: EVIDENCE BASED TREATMENT
  11. BETAMETHASONE [Suspect]
     Indication: GENERAL PHYSICAL HEALTH DETERIORATION
  12. FENOXIFENADINE [Suspect]
     Indication: RASH GENERALISED
     Dosage: 120 MG
  13. FENOXIFENADINE [Suspect]
     Indication: RASH PRURITIC
  14. AZITHROMYCIN [Suspect]
     Dosage: 500 MG
  15. ACYCLOVIR [Suspect]
     Indication: GENERAL PHYSICAL HEALTH DETERIORATION
     Route: 042
  16. ACYCLOVIR [Suspect]
     Indication: EVIDENCE BASED TREATMENT

REACTIONS (5)
  - ALANINE AMINOTRANSFERASE INCREASED [None]
  - DRUG RASH WITH EOSINOPHILIA AND SYSTEMIC SYMPTOMS [None]
  - EOSINOPHIL COUNT INCREASED [None]
  - HUMAN HERPESVIRUS 6 INFECTION [None]
  - RELAPSING FEVER [None]
